FAERS Safety Report 17919198 (Version 2)
Quarter: 2020Q3

REPORT INFORMATION
  Report Type: Spontaneous
  Country: GB (occurrence: GB)
  Receive Date: 20200619
  Receipt Date: 20200709
  Transmission Date: 20201103
  Serious: Yes (Death)
  Sender: FDA-Public Use
  Company Number: NVSC2020GB172342

PATIENT
  Age: 22 Year
  Sex: Male

DRUGS (5)
  1. CLOPIDOGREL [Suspect]
     Active Substance: CLOPIDOGREL BISULFATE
     Indication: CEREBRAL INFARCTION
     Dosage: 75 MILLIGRAM, QD
     Route: 065
  2. CLOPIDOGREL [Suspect]
     Active Substance: CLOPIDOGREL BISULFATE
     Indication: PULMONARY EMBOLISM
  3. CLOPIDOGREL [Suspect]
     Active Substance: CLOPIDOGREL BISULFATE
     Indication: PELVIC VENOUS THROMBOSIS
  4. ARGATROBAN. [Suspect]
     Active Substance: ARGATROBAN
     Indication: ANTICOAGULANT THERAPY
     Dosage: 30 UG/KG/HR
     Route: 065
  5. HEPARIN [Concomitant]
     Active Substance: HEPARIN SODIUM
     Indication: THROMBOSIS
     Dosage: 12 UNITS/KG/HOUR
     Route: 040

REACTIONS (3)
  - Off label use [Unknown]
  - Multiple organ dysfunction syndrome [Fatal]
  - Cerebral haemorrhage [Fatal]
